FAERS Safety Report 6234954-8 (Version None)
Quarter: 2009Q2

REPORT INFORMATION
  Report Type: 
  Country: None (occurrence: None)
  Receive Date: 20090618
  Receipt Date: 20090612
  Transmission Date: 20091009
  Serious: Yes (Death)
  Sender: FDA-Public Use
  Company Number: B0579059A

PATIENT
  Sex: Female

DRUGS (6)
  1. LAMICTAL [Suspect]
     Indication: EPILEPSY
     Dosage: 25MG PER DAY
     Route: 048
     Dates: start: 20090430, end: 20090507
  2. DEPAKENE [Concomitant]
     Route: 048
  3. ARICEPT [Concomitant]
     Route: 048
  4. UNKNOWN DRUG [Concomitant]
     Route: 048
  5. ANPLAG [Concomitant]
     Route: 048
  6. PRAVASTATIN [Concomitant]
     Route: 048

REACTIONS (1)
  - MYOCARDIAL INFARCTION [None]
